FAERS Safety Report 25341504 (Version 1)
Quarter: 2025Q2

REPORT INFORMATION
  Report Type: Spontaneous
  Country: CA (occurrence: CA)
  Receive Date: 20250521
  Receipt Date: 20250521
  Transmission Date: 20250716
  Serious: Yes (Life-Threatening, Hospitalization)
  Sender: PFIZER
  Company Number: CA-PFIZER INC-202500104108

PATIENT
  Age: 81 Year
  Sex: Male
  Weight: 64 kg

DRUGS (14)
  1. FRAGMIN [Suspect]
     Active Substance: DALTEPARIN SODIUM
     Indication: Atrial fibrillation
     Dosage: 12500.0 IU, 1X/DAY
     Route: 058
  2. ACETAMINOPHEN [Concomitant]
     Active Substance: ACETAMINOPHEN
  3. AMIODARONE [Concomitant]
     Active Substance: AMIODARONE
  4. AMLODIPINE [Concomitant]
     Active Substance: AMLODIPINE BESYLATE
     Route: 065
  5. AMOXICILLIN\CLAVULANATE POTASSIUM [Concomitant]
     Active Substance: AMOXICILLIN\CLAVULANATE POTASSIUM
  6. AZITHROMYCIN [Concomitant]
     Active Substance: AZITHROMYCIN
  7. CEFPROZIL [Concomitant]
     Active Substance: CEFPROZIL
  8. CEFTRIAXONE [Concomitant]
     Active Substance: CEFTRIAXONE
  9. ESOMEPRAZOLE [Concomitant]
     Active Substance: ESOMEPRAZOLE
     Route: 065
  10. HALOPERIDOL [Concomitant]
     Active Substance: HALOPERIDOL
  11. HYDRALAZINE [Concomitant]
     Active Substance: HYDRALAZINE HYDROCHLORIDE
  12. METOPROLOL [Concomitant]
     Active Substance: METOPROLOL
     Route: 065
  13. MYRBETRIQ [Concomitant]
     Active Substance: MIRABEGRON
  14. PIPERACILLIN SODIUM\TAZOBACTAM SODIUM [Concomitant]
     Active Substance: PIPERACILLIN SODIUM\TAZOBACTAM SODIUM

REACTIONS (1)
  - Retroperitoneal haematoma [Recovered/Resolved]
